FAERS Safety Report 14528770 (Version 1)
Quarter: 2018Q1

REPORT INFORMATION
  Report Type: Spontaneous
  Country: US (occurrence: US)
  Receive Date: 20180214
  Receipt Date: 20180214
  Transmission Date: 20180509
  Serious: Yes (Hospitalization, Other)
  Sender: FDA-Public Use
  Company Number: US-ROCHE-2067242

PATIENT
  Age: 55 Year
  Sex: Male
  Weight: 115.77 kg

DRUGS (14)
  1. HUMIRA [Suspect]
     Active Substance: ADALIMUMAB
     Route: 058
     Dates: start: 2016, end: 20170301
  2. HUMIRA [Suspect]
     Active Substance: ADALIMUMAB
     Route: 058
     Dates: start: 2017
  3. CELLCEPT [Suspect]
     Active Substance: MYCOPHENOLATE MOFETIL\MYCOPHENOLATE MOFETIL HYDROCHLORIDE
     Indication: ALVEOLITIS ALLERGIC
     Route: 065
  4. GABAPENTINE [Concomitant]
     Active Substance: GABAPENTIN
  5. VENTOLIN [Concomitant]
     Active Substance: ALBUTEROL SULFATE
  6. VITAMIN B12 [Concomitant]
     Active Substance: CYANOCOBALAMIN
  7. PREDNISONE. [Suspect]
     Active Substance: PREDNISONE
     Indication: ALVEOLITIS ALLERGIC
     Route: 065
     Dates: start: 2017
  8. ANDROGEL [Suspect]
     Active Substance: TESTOSTERONE
     Indication: KLINEFELTER^S SYNDROME
     Route: 061
  9. ALBUTEROL. [Concomitant]
     Active Substance: ALBUTEROL
  10. SEROQUEL [Concomitant]
     Active Substance: QUETIAPINE FUMARATE
  11. HYDROCHLOROTHIAZIDE. [Concomitant]
     Active Substance: HYDROCHLOROTHIAZIDE
  12. HUMIRA [Suspect]
     Active Substance: ADALIMUMAB
     Indication: PSORIASIS
     Dosage: 40 MG/0.8 ML; 1IN 2-2
     Route: 058
     Dates: start: 201601, end: 201602
  13. SINGULAIR [Concomitant]
     Active Substance: MONTELUKAST SODIUM
  14. TIZANIDINE. [Concomitant]
     Active Substance: TIZANIDINE

REACTIONS (19)
  - Infection [Not Recovered/Not Resolved]
  - Weight increased [Not Recovered/Not Resolved]
  - Psoriasis [Not Recovered/Not Resolved]
  - Oxygen saturation abnormal [Unknown]
  - Pneumonia [Not Recovered/Not Resolved]
  - Lung disorder [Not Recovered/Not Resolved]
  - Abscess oral [Recovered/Resolved]
  - Cough [Recovered/Resolved]
  - Intentional product use issue [Unknown]
  - Dyspnoea [Recovering/Resolving]
  - Oral pain [Unknown]
  - Off label use [Unknown]
  - Urticaria [Unknown]
  - Drug effect incomplete [Unknown]
  - Hypoaesthesia oral [Recovered/Resolved]
  - Weight decreased [Recovered/Resolved]
  - Blood potassium decreased [Unknown]
  - Alveolitis allergic [Not Recovered/Not Resolved]
  - Hypersensitivity [Not Recovered/Not Resolved]

NARRATIVE: CASE EVENT DATE: 2016
